FAERS Safety Report 6860767-X (Version None)
Quarter: 2010Q3

REPORT INFORMATION
  Report Type: 
  Country: None (occurrence: None)
  Receive Date: 20100719
  Receipt Date: 20100719
  Transmission Date: 20110219
  Serious: Yes (Life-Threatening)
  Sender: FDA-Public Use
  Company Number: None

PATIENT
  Age: 58 Year
  Sex: Female
  Weight: 74.3899 kg

DRUGS (1)
  1. SIMPONI [Suspect]
     Indication: RHEUMATOID ARTHRITIS
     Dosage: 50MG/.5ML Q MONTH SQ
     Route: 058
     Dates: start: 20090910, end: 20100710

REACTIONS (4)
  - DRUG HYPERSENSITIVITY [None]
  - MENTAL STATUS CHANGES [None]
  - RESPIRATORY DISORDER [None]
  - URTICARIA [None]
